FAERS Safety Report 16322691 (Version 1)
Quarter: 2019Q2

REPORT INFORMATION
  Report Type: Spontaneous
  Country: FR (occurrence: FR)
  Receive Date: 20190516
  Receipt Date: 20190516
  Transmission Date: 20190711
  Serious: Yes (Hospitalization)
  Sender: FDA-Public Use
  Company Number: PHHY2019FR095707

PATIENT
  Age: 18 Year
  Sex: Female

DRUGS (7)
  1. LUMACAFTOR/IVACAFTOR VERTEX [Interacting]
     Active Substance: IVACAFTOR\LUMACAFTOR
     Indication: CYSTIC FIBROSIS
     Dosage: 1 DF UG/LITRE, 1 DOSAGE FORM (200/125 MG),BID
     Route: 048
     Dates: start: 201704, end: 201704
  2. LUMACAFTOR/IVACAFTOR VERTEX [Interacting]
     Active Substance: IVACAFTOR\LUMACAFTOR
     Indication: BRONCHOPULMONARY ASPERGILLOSIS
     Dosage: 1 DF UG/LITRE, 1 DOSAGE FORM (200/125 MG), QD
     Route: 048
     Dates: start: 201704, end: 201704
  3. POSACONAZOLE [Interacting]
     Active Substance: POSACONAZOLE
     Indication: BRONCHOPULMONARY ASPERGILLOSIS
     Route: 065
  4. TACROLIMUS. [Suspect]
     Active Substance: TACROLIMUS
     Indication: IMMUNOSUPPRESSANT DRUG THERAPY
     Dosage: 0.8 MG, QD
     Route: 048
  5. POSACONAZOLE [Interacting]
     Active Substance: POSACONAZOLE
     Indication: FUNGAL DISEASE CARRIER
  6. TACROLIMUS. [Suspect]
     Active Substance: TACROLIMUS
     Indication: LIVER TRANSPLANT
     Dosage: 0.4 MG, QD
     Route: 048
  7. POSACONAZOLE [Interacting]
     Active Substance: POSACONAZOLE
     Indication: ASPERGILLUS INFECTION

REACTIONS (4)
  - Forced expiratory volume decreased [Not Recovered/Not Resolved]
  - Immunosuppressant drug level decreased [Recovered/Resolved]
  - Drug level decreased [Not Recovered/Not Resolved]
  - Drug interaction [Not Recovered/Not Resolved]

NARRATIVE: CASE EVENT DATE: 2017
